FAERS Safety Report 16957437 (Version 1)
Quarter: 2019Q4

REPORT INFORMATION
  Report Type: Spontaneous
  Country: PT (occurrence: PT)
  Receive Date: 20191024
  Receipt Date: 20191024
  Transmission Date: 20200122
  Serious: Yes (Other)
  Sender: FDA-Public Use
  Company Number: PT-SA-2019SA279339

PATIENT
  Age: 27 Year
  Sex: Female

DRUGS (12)
  1. CISPLATIN. [Suspect]
     Active Substance: CISPLATIN
     Dosage: 100 MG/M2, QCY, DAY 1, EVERY 21 DAYS
  2. IODINE. [Concomitant]
     Active Substance: IODINE
  3. IRON [Concomitant]
     Active Substance: IRON
     Route: 048
  4. FOLIC ACID. [Concomitant]
     Active Substance: FOLIC ACID
     Dosage: UNK, QD
  5. ONDANSETRON [Concomitant]
     Active Substance: ONDANSETRON
     Indication: PREMEDICATION
  6. METOCLOPRAMIDE HYDROCHLORIDE. [Suspect]
     Active Substance: METOCLOPRAMIDE HYDROCHLORIDE
     Indication: PREMEDICATION
     Dosage: 10 MG
  7. BETAMETHASONE. [Suspect]
     Active Substance: BETAMETHASONE
     Indication: MATERNAL THERAPY TO ENHANCE FOETAL LUNG MATURITY
  8. ETOPOSIDE. [Suspect]
     Active Substance: ETOPOSIDE
     Dosage: 100 MG/M2, DAYS 1 TO 3, CYCLES EVERY 21 DAYS
  9. HYDROCORTISONE. [Suspect]
     Active Substance: HYDROCORTISONE
     Indication: PREMEDICATION
  10. ENOXAPARIN SODIUM. [Suspect]
     Active Substance: ENOXAPARIN SODIUM
     Indication: PROPHYLAXIS
  11. ETOPOSIDE. [Suspect]
     Active Substance: ETOPOSIDE
     Indication: AESTHESIONEUROBLASTOMA
     Dosage: 75 MG/M2, DAYS 1 TO 3, CYCLES EVERY 28 DAYS
  12. CISPLATIN. [Suspect]
     Active Substance: CISPLATIN
     Indication: AESTHESIONEUROBLASTOMA
     Dosage: 75 MG/M2, QCY, DAY 1 EVERY 28 DAYS

REACTIONS (4)
  - Anaemia [Unknown]
  - Maternal exposure during pregnancy [Unknown]
  - Nausea [Unknown]
  - Vomiting [Unknown]
